FAERS Safety Report 19761420 (Version 1)
Quarter: 2021Q3

REPORT INFORMATION
  Report Type: Spontaneous
  Country: US (occurrence: US)
  Receive Date: 20210830
  Receipt Date: 20210830
  Transmission Date: 20211014
  Serious: No
  Sender: FDA-Public Use
  Company Number: US-SA-2021SA283211

PATIENT
  Age: 41 Year
  Sex: Female

DRUGS (8)
  1. METHIMAZOLE. [Concomitant]
     Active Substance: METHIMAZOLE
  2. FLONASE [Concomitant]
     Active Substance: FLUTICASONE PROPIONATE
  3. DUPIXENT [Suspect]
     Active Substance: DUPILUMAB
     Indication: DERMATITIS ATOPIC
     Dosage: 300 MG, QOW
     Route: 058
     Dates: start: 20190215
  4. METOPROLOL. [Concomitant]
     Active Substance: METOPROLOL
  5. VITAMIN D NOS [Concomitant]
     Active Substance: VITAMIN D NOS
  6. ALLEGRA?D [Concomitant]
     Active Substance: FEXOFENADINE HYDROCHLORIDE\PSEUDOEPHEDRINE HYDROCHLORIDE
  7. FOLBIC [Concomitant]
     Active Substance: CYANOCOBALAMIN\FOLIC ACID\PYRIDOXINE
  8. MONTELUKAST [Concomitant]
     Active Substance: MONTELUKAST SODIUM

REACTIONS (1)
  - Iron deficiency [Not Recovered/Not Resolved]

NARRATIVE: CASE EVENT DATE: 20210715
